FAERS Safety Report 17268562 (Version 1)
Quarter: 2020Q1

REPORT INFORMATION
  Report Type: Spontaneous
  Country: FR (occurrence: FR)
  Receive Date: 20200114
  Receipt Date: 20200114
  Transmission Date: 20200409
  Serious: Yes (Hospitalization, Other)
  Sender: FDA-Public Use
  Company Number: FR-BRISTOL-MYERS SQUIBB COMPANY-BMS-2020-002774

PATIENT
  Age: 66 Year
  Sex: Male

DRUGS (2)
  1. OPDIVO [Suspect]
     Active Substance: NIVOLUMAB
     Indication: RENAL CANCER METASTATIC
     Dosage: UNK
     Route: 041
     Dates: start: 20190514, end: 20190604
  2. YERVOY [Suspect]
     Active Substance: IPILIMUMAB
     Indication: RENAL CANCER METASTATIC
     Dosage: UNK
     Route: 041
     Dates: start: 20190514, end: 20190604

REACTIONS (6)
  - Diarrhoea [Recovered/Resolved]
  - Myocarditis [Recovered/Resolved]
  - Pyrexia [Recovered/Resolved]
  - Cholestasis [Recovered/Resolved]
  - Vomiting [Recovered/Resolved]
  - C-reactive protein increased [Recovered/Resolved]

NARRATIVE: CASE EVENT DATE: 20190531
